FAERS Safety Report 25210051 (Version 1)
Quarter: 2025Q2

REPORT INFORMATION
  Report Type: Spontaneous
  Country: CN (occurrence: CN)
  Receive Date: 20250417
  Receipt Date: 20250417
  Transmission Date: 20250717
  Serious: Yes (Other)
  Sender: PURDUE
  Company Number: CN-NAPPMUNDI-GBR-2025-0124829

PATIENT
  Age: 85 Year
  Sex: Male
  Weight: 73 kg

DRUGS (3)
  1. MORPHINE SULFATE [Suspect]
     Active Substance: MORPHINE SULFATE
     Indication: Analgesic therapy
     Dosage: 10 MILLIGRAM, BID
     Route: 048
     Dates: start: 20250314, end: 20250325
  2. MORPHINE SULFATE [Suspect]
     Active Substance: MORPHINE SULFATE
     Dosage: 20 MILLIGRAM, BID
     Route: 048
     Dates: start: 20250326, end: 20250326
  3. MORPHINE SULFATE [Suspect]
     Active Substance: MORPHINE SULFATE
     Route: 048
     Dates: start: 20250327

REACTIONS (3)
  - Muscular weakness [Recovered/Resolved]
  - Pain [Unknown]
  - Intentional product use issue [Unknown]

NARRATIVE: CASE EVENT DATE: 20250326
